FAERS Safety Report 10082025 (Version 2)
Quarter: 2014Q3

REPORT INFORMATION
  Report Type: Spontaneous
  Country: US (occurrence: US)
  Receive Date: 20140416
  Receipt Date: 20140721
  Transmission Date: 20150326
  Serious: Yes (Life-Threatening, Hospitalization)
  Sender: FDA-Public Use
  Company Number: US-BIOMARINAP-US-2014-103028

PATIENT
  Age: 31 Year
  Sex: Female

DRUGS (1)
  1. ALDURAZYME [Suspect]
     Active Substance: LARONIDASE
     Indication: MUCOPOLYSACCHARIDOSIS I
     Dosage: 37.7 MG, QW
     Dates: start: 200505

REACTIONS (3)
  - Respiratory tract irritation [Unknown]
  - Surgery [Unknown]
  - Device issue [Unknown]

NARRATIVE: CASE EVENT DATE: 20140328
